FAERS Safety Report 7287236-X (Version None)
Quarter: 2011Q1

REPORT INFORMATION
  Report Type: 
  Country: None (occurrence: None)
  Receive Date: 20110211
  Receipt Date: 20110204
  Transmission Date: 20110831
  Serious: Yes (Other)
  Sender: FDA-Public Use
  Company Number: RU-BAYER-2011-007908

PATIENT
  Age: 35 Year
  Sex: Female

DRUGS (2)
  1. NO-SPA [Suspect]
     Dosage: 80 MG, BID
  2. YAZ [Suspect]
     Indication: CONTRACEPTION
     Dosage: 1 DF, ONCE
     Route: 048
     Dates: start: 20100301

REACTIONS (8)
  - UNEVALUABLE EVENT [None]
  - PANCREATIC CYST [None]
  - EPIGASTRIC DISCOMFORT [None]
  - ABDOMINAL PAIN UPPER [None]
  - HAEMANGIOMA OF LIVER [None]
  - PANCREATIC DISORDER [None]
  - PELVIC FLUID COLLECTION [None]
  - HEPATIC ADENOMA [None]
